FAERS Safety Report 6296603-2 (Version None)
Quarter: 2009Q3

REPORT INFORMATION
  Report Type: 
  Country: None (occurrence: None)
  Receive Date: 20090804
  Receipt Date: 20090729
  Transmission Date: 20100115
  Serious: Yes (Hospitalization, Other)
  Sender: FDA-Public Use
  Company Number: US-MERCK-0807USA00244

PATIENT
  Age: 63 Year
  Sex: Female
  Weight: 73 kg

DRUGS (5)
  1. FOSAMAX [Suspect]
     Indication: OSTEOPOROSIS
     Route: 048
     Dates: start: 19990301, end: 20050101
  2. FOSAMAX [Suspect]
     Route: 048
     Dates: start: 19970101, end: 20070101
  3. FOSAMAX [Suspect]
     Route: 048
     Dates: start: 20071023
  4. FOSAMAX [Suspect]
     Route: 048
  5. FOSAMAX PLUS D [Suspect]
     Indication: OSTEOPOROSIS
     Route: 048
     Dates: start: 20050101, end: 20070701

REACTIONS (36)
  - ABSCESS [None]
  - ANXIETY [None]
  - ARTHRITIS [None]
  - BALANCE DISORDER [None]
  - BILE DUCT STONE [None]
  - BIPOLAR DISORDER [None]
  - CHOLECYSTITIS [None]
  - CYST [None]
  - DENTAL CARIES [None]
  - DEPRESSION [None]
  - DRUG HYPERSENSITIVITY [None]
  - FALL [None]
  - FEMUR FRACTURE [None]
  - GASTROOESOPHAGEAL REFLUX DISEASE [None]
  - GINGIVAL INFECTION [None]
  - GINGIVITIS [None]
  - HYPERCHOLESTEROLAEMIA [None]
  - HYPOKALAEMIA [None]
  - HYPOPROTEINAEMIA [None]
  - INSOMNIA [None]
  - JAW DISORDER [None]
  - LICHEN SCLEROSUS [None]
  - LIGAMENT RUPTURE [None]
  - LIMB INJURY [None]
  - MEDICAL DEVICE COMPLICATION [None]
  - OEDEMA MOUTH [None]
  - ORAL INFECTION [None]
  - OSTEOARTHRITIS [None]
  - OSTEONECROSIS [None]
  - PANCREATITIS [None]
  - PERIODONTAL DISEASE [None]
  - RADIUS FRACTURE [None]
  - ROTATOR CUFF SYNDROME [None]
  - URTICARIA [None]
  - VITAMIN D DEFICIENCY [None]
  - WRIST FRACTURE [None]
